FAERS Safety Report 9479380 (Version 1)
Quarter: 2013Q3

REPORT INFORMATION
  Report Type: Spontaneous
  Country: US (occurrence: US)
  Receive Date: 20130827
  Receipt Date: 20130827
  Transmission Date: 20140515
  Serious: No
  Sender: FDA-Public Use
  Company Number: US-PFIZER INC-2013244993

PATIENT
  Age: 51 Year
  Sex: Female

DRUGS (1)
  1. EPIPEN [Suspect]
     Indication: ARTHROPOD STING
     Dosage: 0.3 MG, UNK

REACTIONS (5)
  - Accidental exposure to product [Unknown]
  - Pain in extremity [Not Recovered/Not Resolved]
  - Injection site injury [Not Recovered/Not Resolved]
  - Expired drug administered [Unknown]
  - Product quality issue [Unknown]
